FAERS Safety Report 4684369-9 (Version None)
Quarter: 2005Q2

REPORT INFORMATION
  Report Type: 
  Country: None (occurrence: None)
  Receive Date: 20050531
  Receipt Date: 20041015
  Transmission Date: 20051028
  Serious: Yes (Other)
  Sender: FDA-Public Use
  Company Number: USA041081307

PATIENT
  Age: 55 Year
  Sex: Female
  Weight: 182 kg

DRUGS (1)
  1. ZYPREXA [Suspect]
     Indication: BIPOLAR DISORDER
     Dates: start: 20020101

REACTIONS (2)
  - HYPERPHAGIA [None]
  - WEIGHT INCREASED [None]
